FAERS Safety Report 10037978 (Version 1)
Quarter: 2014Q1

REPORT INFORMATION
  Report Type: Spontaneous
  Country: US (occurrence: None)
  Receive Date: 20140306
  Receipt Date: 20140306
  Transmission Date: 20141002
  Serious: Yes (Other)
  Sender: FDA-Public Use
  Company Number: 163-21880-13104465

PATIENT
  Age: 72 Year
  Sex: Female
  Weight: 45.4 kg

DRUGS (4)
  1. REVLIMID [Suspect]
     Indication: PLASMA CELL MYELOMA
     Route: 048
     Dates: start: 20130930
  2. ASPIRIN (ACETYLSALICYLIC ACID) [Concomitant]
  3. VITAMIN D (ERGOCALCIFEROL) [Concomitant]
  4. CODEINE (CODEINE) [Concomitant]

REACTIONS (17)
  - Rash generalised [None]
  - Skin exfoliation [None]
  - Tongue dry [None]
  - Drooling [None]
  - Gait disturbance [None]
  - Hyporeflexia [None]
  - Feeling hot [None]
  - Night sweats [None]
  - Dyspnoea [None]
  - Fatigue [None]
  - Back pain [None]
  - Epistaxis [None]
  - Pruritus [None]
  - Asthenia [None]
  - Weight decreased [None]
  - Dysgeusia [None]
  - Discomfort [None]
